FAERS Safety Report 5042670-3 (Version None)
Quarter: 2006Q3

REPORT INFORMATION
  Report Type: 
  Country: None (occurrence: None)
  Receive Date: 20060705
  Receipt Date: 20041110
  Transmission Date: 20061208
  Serious: Yes (Hospitalization)
  Sender: FDA-Public Use
  Company Number: 2004AP05755

PATIENT
  Age: 63 Year
  Sex: Male

DRUGS (6)
  1. NEXIUM [Suspect]
     Indication: GASTROOESOPHAGEAL REFLUX DISEASE
     Route: 048
     Dates: start: 20031130
  2. PARIET [Suspect]
     Indication: NAUSEA
     Route: 048
     Dates: end: 20031130
  3. PARIET [Suspect]
     Indication: DYSPEPSIA
     Route: 048
     Dates: end: 20031130
  4. AVAPRO [Concomitant]
     Dosage: 300/12.5 MG
     Dates: start: 20020101
  5. NORVASC [Concomitant]
     Dates: start: 20020101
  6. ROFECOXIB [Concomitant]
     Dosage: INFREQUENT USE

REACTIONS (5)
  - DYSPEPSIA [None]
  - FATIGUE [None]
  - HAEMATURIA [None]
  - NEPHRITIS INTERSTITIAL [None]
  - NORMOCHROMIC NORMOCYTIC ANAEMIA [None]
